FAERS Safety Report 22191784 (Version 1)
Quarter: 2023Q2

REPORT INFORMATION
  Report Type: Spontaneous
  Country: US (occurrence: None)
  Receive Date: 20230407
  Receipt Date: 20230407
  Transmission Date: 20230721
  Serious: No
  Sender: FDA-Public Use
  Company Number: None

PATIENT
  Age: 52 Year
  Sex: Female
  Weight: 87.75 kg

DRUGS (8)
  1. METFORMIN [Suspect]
     Active Substance: METFORMIN HYDROCHLORIDE
     Indication: Glucose tolerance impaired
     Dosage: 2 CAPSULES  DAILY ORAL
     Route: 048
     Dates: start: 20221216, end: 20230307
  2. SAXENDA [Concomitant]
     Active Substance: LIRAGLUTIDE
  3. WELLBUTRIN [Concomitant]
     Active Substance: BUPROPION HYDROCHLORIDE
  4. CARVEDILOL [Concomitant]
     Active Substance: CARVEDILOL
  5. VALSARTAN [Concomitant]
     Active Substance: VALSARTAN
  6. VITAMIN D NOS [Concomitant]
     Active Substance: VITAMIN D NOS
  7. CRATAEGUS LAEVIGATA FRUIT [Concomitant]
     Active Substance: CRATAEGUS LAEVIGATA FRUIT
  8. MAGNESIUM SULFATE [Concomitant]
     Active Substance: MAGNESIUM SULFATE

REACTIONS (5)
  - Constipation [None]
  - Nausea [None]
  - Product odour abnormal [None]
  - Therapeutic product effect incomplete [None]
  - Product substitution issue [None]

NARRATIVE: CASE EVENT DATE: 20230201
